FAERS Safety Report 6135990-2 (Version None)
Quarter: 2009Q1

REPORT INFORMATION
  Report Type: 
  Country: None (occurrence: None)
  Receive Date: 20090329
  Receipt Date: 20081217
  Transmission Date: 20090719
  Serious: No
  Sender: FDA-Public Use
  Company Number: US-BAUSCH-2008BL005281

PATIENT
  Age: 77 Year
  Sex: Female
  Weight: 61 kg

DRUGS (13)
  1. LOTEMAX [Suspect]
     Indication: EYE INFECTION
     Route: 047
     Dates: start: 20081002
  2. ACIDOPHILUS ^ZYMA^ [Concomitant]
     Indication: PROPHYLAXIS
     Route: 048
  3. ADVIL [Concomitant]
     Indication: ARTHRITIS
     Route: 048
  4. VITAMIN B6 [Concomitant]
     Indication: VITAMIN SUPPLEMENTATION
     Route: 048
  5. VITAMIN B-12 [Concomitant]
     Indication: VITAMIN SUPPLEMENTATION
     Route: 048
  6. CENTRUM SILVER [Concomitant]
     Indication: VITAMIN SUPPLEMENTATION
     Route: 048
  7. CITRACAL [Concomitant]
     Indication: MINERAL SUPPLEMENTATION
     Route: 048
  8. COLACE [Concomitant]
     Indication: CONSTIPATION
     Route: 048
  9. METAMUCIL-2 [Concomitant]
     Indication: CONSTIPATION
     Route: 048
  10. SONATA [Concomitant]
     Indication: SLEEP DISORDER
     Route: 048
  11. SYSTANE [Concomitant]
     Indication: KERATOCONJUNCTIVITIS SICCA
     Route: 047
     Dates: start: 20050101
  12. TOPROL-XL [Concomitant]
     Indication: HYPERTENSION
     Route: 048
     Dates: start: 20040101
  13. ASPERCREME [Concomitant]
     Indication: ARTHRITIS
     Route: 061

REACTIONS (4)
  - ARTHRITIS [None]
  - EYE IRRITATION [None]
  - EYE PRURITUS [None]
  - LACRIMATION INCREASED [None]
